FAERS Safety Report 8434327-3 (Version None)
Quarter: 2012Q2

REPORT INFORMATION
  Report Type: 
  Country: None (occurrence: None)
  Receive Date: 20120613
  Receipt Date: 20120607
  Transmission Date: 20120825
  Serious: Yes (Other)
  Sender: FDA-Public Use
  Company Number: US-ABBOTT-12P-163-0944283-00

PATIENT
  Age: 37 Year
  Sex: Female

DRUGS (3)
  1. MERCAPTOPURINE [Concomitant]
  2. ADALIMUMAB [Suspect]
     Indication: CROHN'S DISEASE
  3. INFLIXIMAB [Suspect]
     Indication: CROHN'S DISEASE

REACTIONS (3)
  - METASTATIC CUTANEOUS CROHN'S DISEASE [None]
  - PSORIASIS [None]
  - CROHN'S DISEASE [None]
